FAERS Safety Report 6630186-X (Version None)
Quarter: 2010Q1

REPORT INFORMATION
  Report Type: 
  Country: None (occurrence: None)
  Receive Date: 20100311
  Receipt Date: 20100309
  Transmission Date: 20100710
  Serious: Yes (Other)
  Sender: FDA-Public Use
  Company Number: A0849383A

PATIENT
  Age: 60 Year
  Sex: Female

DRUGS (2)
  1. ALLI [Suspect]
     Indication: DRUG USE FOR UNKNOWN INDICATION
     Route: 048
     Dates: start: 20090908
  2. THYROID REPLACEMENT [Suspect]
     Indication: HYPOTHYROIDISM
     Route: 048

REACTIONS (7)
  - ALOPECIA [None]
  - DEPRESSION [None]
  - DRUG INTERACTION [None]
  - DRY SKIN [None]
  - FATIGUE [None]
  - HYPOTHYROIDISM [None]
  - ONYCHOCLASIS [None]
